FAERS Safety Report 8518458-5 (Version None)
Quarter: 2012Q3

REPORT INFORMATION
  Report Type: 
  Country: None (occurrence: None)
  Receive Date: 20120718
  Receipt Date: 20120319
  Transmission Date: 20120928
  Serious: No
  Sender: FDA-Public Use
  Company Number: US-BRISTOL-MYERS SQUIBB COMPANY-16462061

PATIENT
  Age: 68 Year
  Sex: Female

DRUGS (8)
  1. LEXAPRO [Concomitant]
  2. COUMADIN [Suspect]
  3. CRANBERRY JUICE [Suspect]
  4. LASIX [Concomitant]
  5. PREDNISONE [Concomitant]
  6. NORVASC [Concomitant]
  7. COREG [Concomitant]
  8. SPIRONOLACTONE [Concomitant]

REACTIONS (1)
  - INTERNATIONAL NORMALISED RATIO FLUCTUATION [None]
